FAERS Safety Report 7159548-1 (Version None)
Quarter: 2010Q4

REPORT INFORMATION
  Report Type: 
  Country: None (occurrence: None)
  Receive Date: 20101214
  Receipt Date: 20100920
  Transmission Date: 20110411
  Serious: No
  Sender: FDA-Public Use
  Company Number: US-ASTRAZENECA-2010SE44177

PATIENT
  Age: 901 Month
  Sex: Female

DRUGS (1)
  1. CRESTOR [Suspect]
     Route: 048
     Dates: start: 20100401, end: 20100801

REACTIONS (5)
  - ADVERSE EVENT [None]
  - DIZZINESS [None]
  - DYSPNOEA [None]
  - RASH [None]
  - SENSATION OF HEAVINESS [None]
